FAERS Safety Report 6186775-2 (Version None)
Quarter: 2009Q2

REPORT INFORMATION
  Report Type: 
  Country: None (occurrence: None)
  Receive Date: 20090512
  Receipt Date: 20090428
  Transmission Date: 20091009
  Serious: Yes (Hospitalization)
  Sender: FDA-Public Use
  Company Number: CA-ROCHE-430733

PATIENT
  Sex: Female
  Weight: 48.7 kg

DRUGS (25)
  1. CELLCEPT [Suspect]
     Indication: SYSTEMIC LUPUS ERYTHEMATOSUS
     Route: 048
     Dates: start: 20050404, end: 20051007
  2. EPREX [Suspect]
     Indication: NEPHROGENIC ANAEMIA
     Route: 058
     Dates: start: 19990621, end: 19990808
  3. EPREX [Suspect]
     Route: 058
     Dates: start: 20000209, end: 20000228
  4. EPREX [Suspect]
     Route: 058
     Dates: start: 20000228, end: 20000303
  5. EPREX [Suspect]
     Route: 058
     Dates: start: 20000320, end: 20001126
  6. EPREX [Suspect]
     Route: 058
     Dates: start: 20010109, end: 20011001
  7. EPREX [Suspect]
     Route: 058
     Dates: start: 20011122, end: 20020102
  8. EPREX [Suspect]
     Route: 058
     Dates: start: 20030220, end: 20040812
  9. EPREX [Suspect]
     Route: 058
     Dates: start: 20040924, end: 20050628
  10. EPREX [Suspect]
     Route: 058
     Dates: start: 20050516, end: 20050519
  11. EPREX [Suspect]
     Route: 058
     Dates: start: 20050519, end: 20050618
  12. EPREX [Suspect]
     Route: 058
     Dates: start: 20050628, end: 20050722
  13. EPREX [Suspect]
     Route: 058
     Dates: start: 20050630, end: 20050702
  14. EPREX [Suspect]
     Route: 058
     Dates: start: 20050714, end: 20050723
  15. ARANESP [Suspect]
     Indication: NEPHROGENIC ANAEMIA
     Route: 058
     Dates: start: 20050722, end: 20050926
  16. ARANESP [Suspect]
     Route: 058
     Dates: start: 20050926, end: 20051129
  17. AZATHIOPRINE [Suspect]
     Indication: DRUG USE FOR UNKNOWN INDICATION
     Route: 065
     Dates: start: 19980101, end: 20050404
  18. PREDNISONE [Suspect]
     Indication: SYSTEMIC LUPUS ERYTHEMATOSUS
     Route: 048
     Dates: start: 19990828
  19. ACTONEL [Concomitant]
     Indication: OSTEOPOROSIS
     Route: 048
     Dates: start: 20010307
  20. CALCIUM [Concomitant]
     Indication: HYPERPHOSPHATAEMIA
     Route: 048
     Dates: start: 20050620
  21. AMLODIPINE [Concomitant]
     Indication: BLOOD PRESSURE
     Route: 048
     Dates: start: 20050605
  22. SODIUM BICARBONATE IN PLASTIC CONTAINER [Concomitant]
     Indication: ACIDOSIS
     Route: 048
     Dates: start: 20050706
  23. PANTOPRAZOLE SODIUM [Concomitant]
     Indication: PEPTIC ULCER
     Route: 048
     Dates: start: 20050620
  24. ATACAND [Concomitant]
     Indication: BLOOD PRESSURE
     Route: 048
     Dates: start: 20050620
  25. BLOOD TRANSFUSION [Concomitant]

REACTIONS (12)
  - ANAEMIA [None]
  - BONE MARROW FAILURE [None]
  - CONJUNCTIVITIS [None]
  - DRUG INEFFECTIVE [None]
  - DYSPNOEA [None]
  - EYE ALLERGY [None]
  - FATIGUE [None]
  - GASTROINTESTINAL CANDIDIASIS [None]
  - HAEMOGLOBIN DECREASED [None]
  - INFECTION [None]
  - MOUTH ULCERATION [None]
  - OESOPHAGITIS [None]
